FAERS Safety Report 14948128 (Version 3)
Quarter: 2018Q2

REPORT INFORMATION
  Report Type: Spontaneous
  Country: DE (occurrence: DE)
  Receive Date: 20180529
  Receipt Date: 20180620
  Transmission Date: 20180711
  Serious: Yes (Hospitalization)
  Sender: FDA-Public Use
  Company Number: DE-PFIZER INC-2018211807

PATIENT
  Age: 75 Year
  Sex: Male

DRUGS (13)
  1. METOPROLOL. [Concomitant]
     Active Substance: METOPROLOL
     Dosage: 47.5 NG, 1X/DAY 1-0-0-0
  2. LANTUS [Concomitant]
     Active Substance: INSULIN GLARGINE
     Dosage: 0-0-10-0
  3. URAPIDIL [Concomitant]
     Active Substance: URAPIDIL
     Dosage: 60 MG, 3X/DAY 1-0-1-1
  4. GEMCITABINE HYDROCHLORIDE. [Suspect]
     Active Substance: GEMCITABINE HYDROCHLORIDE
     Dosage: UNK
  5. FEBUXOSTAT. [Concomitant]
     Active Substance: FEBUXOSTAT
     Dosage: 80 MG, 1X/DAY 1-0-0-0
  6. FUROSEMID [Concomitant]
     Active Substance: FUROSEMIDE
     Dosage: 40 MG, 0.5-0.5-0-0
  7. CISPLATIN. [Suspect]
     Active Substance: CISPLATIN
     Dosage: UNK
  8. PANTOPRAZOL [Concomitant]
     Active Substance: PANTOPRAZOLE SODIUM
     Dosage: 40 MG, 1X/DAY 1-0-0-0
  9. LEVOTHYROXIN [Concomitant]
     Active Substance: LEVOTHYROXINE
     Dosage: 125 UG, 1X/DAY 1-0-0-0
  10. SIMVASTATIN. [Concomitant]
     Active Substance: SIMVASTATIN
     Dosage: 40 MG, 1X/DAY 0-0-0-1
  11. KREON [Concomitant]
     Active Substance: PANCRELIPASE
     Dosage: 25000 IU, 3X/DAY 1-1-1-0
  12. ACTRAPID [Concomitant]
     Active Substance: INSULIN HUMAN
     Dosage: ACCORDING TO BLOOD SUGAR
  13. LERCANIDIPINE [Concomitant]
     Active Substance: LERCANIDIPINE
     Dosage: 10 MG, 1X/DAY 1-0-0-0

REACTIONS (1)
  - Systemic infection [Unknown]

NARRATIVE: CASE EVENT DATE: 20160620
